FAERS Safety Report 4600976-3 (Version None)
Quarter: 2005Q2

REPORT INFORMATION
  Report Type: 
  Country: None (occurrence: None)
  Receive Date: 20050204
  Receipt Date: 20041129
  Transmission Date: 20051028
  Serious: Yes (Hospitalization)
  Sender: FDA-Public Use
  Company Number: USA041183537

PATIENT
  Age: 67 Year
  Sex: Female
  Weight: 58 kg

DRUGS (14)
  1. FORTEO [Suspect]
     Indication: OSTEOPOROSIS
     Dosage: 20 UG/1 DAY
     Dates: start: 20041021
  2. EVISTA [Suspect]
     Indication: OSTEOPOROSIS
     Dosage: 60 MG/1 DAY
     Dates: start: 20000101, end: 20041020
  3. CLARITIN-D [Concomitant]
  4. ULTRACET [Concomitant]
  5. ASPIRIN [Concomitant]
  6. PRILOSEC (OMEPRAZOL RATIOPHARM) [Concomitant]
  7. LIPITOR [Concomitant]
  8. DULCOLAX [Concomitant]
  9. VASOTEC [Concomitant]
  10. OSCAL (CALCIUM CARBONATE) [Concomitant]
  11. PENTA-TRIAMTERENE HCTZ [Concomitant]
  12. ACTONEL [Concomitant]
  13. MIACALCIN [Concomitant]
  14. MECLIZINE [Concomitant]

REACTIONS (10)
  - ABDOMINAL PAIN UPPER [None]
  - ARTHRITIS [None]
  - BLOOD CHOLESTEROL INCREASED [None]
  - BRONCHITIS [None]
  - CONSTIPATION [None]
  - INJECTION SITE ERYTHEMA [None]
  - INJECTION SITE PRURITUS [None]
  - NAUSEA [None]
  - PAIN IN JAW [None]
  - RIB FRACTURE [None]
